FAERS Safety Report 26155737 (Version 1)
Quarter: 2025Q4

REPORT INFORMATION
  Report Type: Spontaneous
  Country: EU (occurrence: EU)
  Receive Date: 20251215
  Receipt Date: 20251215
  Transmission Date: 20260118
  Serious: Yes (Other)
  Sender: ALKEM
  Company Number: EU-ALKEM LABORATORIES LIMITED-PL-ALKEM-2025-08965

PATIENT
  Age: 30 Year
  Sex: Female

DRUGS (6)
  1. TACROLIMUS [Suspect]
     Active Substance: TACROLIMUS
     Indication: Immunosuppressant drug therapy
     Dosage: 12 MILLIGRAM
     Route: 065
  2. TACROLIMUS [Suspect]
     Active Substance: TACROLIMUS
     Dosage: 20 MG/DAY
     Route: 065
  3. TACROLIMUS [Suspect]
     Active Substance: TACROLIMUS
     Dosage: UNK (DOSE LOWERED)
     Route: 065
  4. BETAMETHASONE [Suspect]
     Active Substance: BETAMETHASONE
     Indication: Maternal therapy to enhance foetal lung maturity
     Dosage: 12 MILLIGRAM, QD (TWO INTRAMUSCULAR IN AN INTERVAL OF 24 H)
     Route: 030
  5. HYDROXYPROGESTERONE [Suspect]
     Active Substance: HYDROXYPROGESTERONE
     Indication: Maternal therapy to enhance foetal lung maturity
     Dosage: UNK
     Route: 030
  6. PROGESTERONE [Suspect]
     Active Substance: PROGESTERONE
     Indication: Maternal therapy to enhance foetal lung maturity
     Dosage: 100 MILLIGRAM, BID
     Route: 067

REACTIONS (6)
  - Hyperkalaemia [Unknown]
  - Exposure during pregnancy [Unknown]
  - Maternal exposure during breast feeding [Unknown]
  - Overdose [Unknown]
  - Urinary tract infection [Unknown]
  - Immunosuppressant drug level increased [Recovering/Resolving]
